FAERS Safety Report 20613372 (Version 1)
Quarter: 2022Q1

REPORT INFORMATION
  Report Type: Spontaneous
  Country: US (occurrence: US)
  Receive Date: 20220319
  Receipt Date: 20220319
  Transmission Date: 20220423
  Serious: No
  Sender: FDA-Public Use
  Company Number: US-AMGEN-USASP2021210142

PATIENT
  Age: 81 Year
  Sex: Female
  Weight: 86.168 kg

DRUGS (5)
  1. NPLATE [Suspect]
     Active Substance: ROMIPLOSTIM
     Indication: Immune thrombocytopenia
     Dosage: UNK
     Route: 065
     Dates: start: 2010
  2. NPLATE [Suspect]
     Active Substance: ROMIPLOSTIM
     Dosage: 92 MICROGRAM
     Route: 065
  3. ASPIRIN [Concomitant]
     Active Substance: ASPIRIN
     Dosage: 81 MILLIGRAM
  4. HYDROCHLOROTHIAZIDE\LOSARTAN [Concomitant]
     Active Substance: HYDROCHLOROTHIAZIDE\LOSARTAN
  5. TYLENOL [Concomitant]
     Active Substance: ACETAMINOPHEN

REACTIONS (3)
  - Cardiac disorder [Not Recovered/Not Resolved]
  - Gait disturbance [Unknown]
  - Platelet count decreased [Unknown]
